FAERS Safety Report 7142086-X (Version None)
Quarter: 2010Q4

REPORT INFORMATION
  Report Type: 
  Country: None (occurrence: None)
  Receive Date: 20101207
  Receipt Date: 20101203
  Transmission Date: 20110411
  Serious: Yes (Hospitalization, Other)
  Sender: FDA-Public Use
  Company Number: US-PFIZER INC-2010095303

PATIENT
  Sex: Female

DRUGS (13)
  1. CHANTIX [Suspect]
     Indication: SMOKING CESSATION THERAPY
     Dosage: STARTING PAK
     Dates: start: 20090501
  2. PLAVIX [Concomitant]
     Indication: BLOOD DISORDER
     Dosage: UNK
     Dates: start: 19860101
  3. PLAVIX [Concomitant]
     Indication: CARDIAC DISORDER
  4. ZETIA [Concomitant]
     Indication: BLOOD DISORDER
     Dosage: UNK
     Dates: start: 19860101
  5. ZETIA [Concomitant]
     Indication: CARDIAC DISORDER
  6. METOPROLOL [Concomitant]
     Indication: BLOOD DISORDER
     Dosage: UNK
     Dates: start: 19860101
  7. METOPROLOL [Concomitant]
     Indication: CARDIAC DISORDER
  8. ENALAPRIL MALEATE [Concomitant]
     Indication: BLOOD DISORDER
     Dosage: UNK
     Dates: start: 19860101
  9. ENALAPRIL MALEATE [Concomitant]
     Indication: CARDIAC DISORDER
  10. AMITRIPTYLINE [Concomitant]
     Indication: BLOOD DISORDER
     Dosage: UNK
     Dates: start: 19860101
  11. AMITRIPTYLINE [Concomitant]
     Indication: CARDIAC DISORDER
  12. ACETYLSALICYLIC ACID [Concomitant]
     Indication: BLOOD DISORDER
     Dosage: UNK
     Dates: start: 19860101
  13. ACETYLSALICYLIC ACID [Concomitant]
     Indication: CARDIAC DISORDER

REACTIONS (6)
  - ANXIETY [None]
  - CRYING [None]
  - DEPRESSION [None]
  - INSOMNIA [None]
  - INTENTIONAL OVERDOSE [None]
  - SUICIDE ATTEMPT [None]
